FAERS Safety Report 8334812-9 (Version None)
Quarter: 2012Q2

REPORT INFORMATION
  Report Type: 
  Country: None (occurrence: None)
  Receive Date: 20120503
  Receipt Date: 20100806
  Transmission Date: 20120825
  Serious: No
  Sender: FDA-Public Use
  Company Number: US-TEVA-2010004185

PATIENT
  Sex: Male
  Weight: 108.96 kg

DRUGS (8)
  1. ASTEPRO [Concomitant]
  2. VITAMIN TAB [Concomitant]
  3. NUVIGIL [Suspect]
     Indication: SLEEP APNOEA SYNDROME
     Route: 048
     Dates: start: 20100805, end: 20100805
  4. NIASPAN [Concomitant]
  5. LOVASA [Concomitant]
  6. UROXATRAL [Concomitant]
  7. CRESTOR [Concomitant]
  8. ANDROGEL [Concomitant]

REACTIONS (2)
  - DRUG EFFECT INCREASED [None]
  - INSOMNIA [None]
